FAERS Safety Report 7900520-9 (Version None)
Quarter: 2011Q4

REPORT INFORMATION
  Report Type: 
  Country: None (occurrence: None)
  Receive Date: 20111108
  Receipt Date: 20111027
  Transmission Date: 20120403
  Serious: Yes (Hospitalization)
  Sender: FDA-Public Use
  Company Number: MX-BRISTOL-MYERS SQUIBB COMPANY-16205353

PATIENT
  Age: 65 Year
  Sex: Female
  Weight: 75 kg

DRUGS (2)
  1. CONCOR [Concomitant]
     Indication: HYPERTENSION
     Dosage: TAB
     Route: 048
     Dates: start: 20010101
  2. COAPROVEL TABS 300MG/12.5MG [Suspect]
     Indication: HYPERTENSION
     Dosage: 1 D.F:1TAB
     Route: 048
     Dates: start: 20010101

REACTIONS (2)
  - HIP ARTHROPLASTY [None]
  - CONGENITAL HIP DEFORMITY [None]
